FAERS Safety Report 4345988-2 (Version None)
Quarter: 2004Q2

REPORT INFORMATION
  Report Type: 
  Country: None (occurrence: None)
  Receive Date: 20040420
  Receipt Date: 20040407
  Transmission Date: 20050107
  Serious: Yes (Death)
  Sender: FDA-Public Use
  Company Number: HQWYE704603NOV03

PATIENT
  Age: 72 Year
  Sex: Male

DRUGS (5)
  1. CORDAREX (AMIODARONE, TABLET) [Suspect]
     Indication: VENTRICULAR EXTRASYSTOLES
     Dosage: 200 MG 3X PER 1 DAY
     Route: 048
     Dates: start: 20030520, end: 20030521
  2. VIOXX [Suspect]
     Indication: HAEMORRHOIDS
     Dosage: SEE IMAGE
     Route: 048
     Dates: start: 20030517, end: 20030519
  3. VIOXX [Suspect]
     Indication: RECTAL PROLAPSE
     Dosage: SEE IMAGE
     Route: 048
     Dates: start: 20030517, end: 20030519
  4. VIOXX [Suspect]
     Indication: HAEMORRHOIDS
     Dosage: SEE IMAGE
     Route: 048
     Dates: start: 20030520, end: 20030521
  5. VIOXX [Suspect]
     Indication: RECTAL PROLAPSE
     Dosage: SEE IMAGE
     Route: 048
     Dates: start: 20030520, end: 20030521

REACTIONS (7)
  - ANAL DISCOMFORT [None]
  - DISSEMINATED INTRAVASCULAR COAGULATION [None]
  - HEPATITIS TOXIC [None]
  - RENAL FAILURE ACUTE [None]
  - RHABDOMYOLYSIS [None]
  - TACHYCARDIA [None]
  - VENTRICULAR EXTRASYSTOLES [None]
